FAERS Safety Report 8849219 (Version 1)
Quarter: 2012Q4

REPORT INFORMATION
  Report Type: Spontaneous
  Country: US (occurrence: None)
  Receive Date: 20121018
  Receipt Date: 20121018
  Transmission Date: 20130627
  Serious: Yes (Hospitalization)
  Sender: FDA-Public Use
  Company Number: None

PATIENT
  Age: 26 Year
  Sex: Female

DRUGS (1)
  1. FILGRASTIM [Suspect]
     Indication: CHEMOTHERAPY
     Dosage: 300 mcg Subcutaneous injection
     Route: 058
     Dates: start: 20120509

REACTIONS (9)
  - Dyspnoea [None]
  - Nasal discomfort [None]
  - Chest discomfort [None]
  - Scleral discolouration [None]
  - Lacrimation increased [None]
  - Heart rate increased [None]
  - Respiratory disorder [None]
  - Electrocardiogram QT prolonged [None]
  - Flushing [None]
